FAERS Safety Report 9281769 (Version 3)
Quarter: 2013Q3

REPORT INFORMATION
  Report Type: Spontaneous
  Country: US (occurrence: US)
  Receive Date: 20130510
  Receipt Date: 20130911
  Transmission Date: 20140515
  Serious: Yes (Hospitalization)
  Sender: FDA-Public Use
  Company Number: US-B.I. PHARMACEUTICALS,INC./RIDGEFIELD-2013-BI-13033BP

PATIENT
  Sex: Female
  Weight: 88 kg

DRUGS (19)
  1. PRADAXA [Suspect]
     Indication: ANTICOAGULANT THERAPY
     Dosage: 300 MG
     Route: 048
     Dates: start: 20111025, end: 20120221
  2. PRADAXA [Suspect]
     Indication: ATRIAL FIBRILLATION
  3. ASPIRIN [Suspect]
     Dosage: 81 MG
     Dates: start: 20090427
  4. VOLTAREN GEL [Suspect]
     Indication: ARTHRALGIA
  5. A+D ZINC OXIDE [Concomitant]
     Indication: SKIN IRRITATION
  6. ACETAMINOPHEN [Concomitant]
  7. ALLOPURINOL [Concomitant]
     Indication: GOUT
     Dosage: 150 MG
  8. BENEFIBER [Concomitant]
  9. DOCUSATE SODIUM [Concomitant]
     Dosage: 100 MG
  10. FLUTICASONE NASAL SPRAY [Concomitant]
     Route: 045
  11. HYDROCHLOROTHIAZIDE [Concomitant]
  12. METOPROLOL TARTRATE [Concomitant]
     Dosage: 50 MG
  13. MILK OF MAGNESIA [Concomitant]
  14. MULTIVITAMINS [Concomitant]
  15. NITROFURANTOIN MACROCRYSTALS [Concomitant]
     Indication: URINARY TRACT INFECTION
     Dosage: 50 MG
  16. NYSTATIN [Concomitant]
  17. PRAVASTATIN [Concomitant]
     Dosage: 2000 U
  18. TRAMADOL [Concomitant]
     Dosage: 150 MG
  19. VITAMIN D3 [Concomitant]
     Dosage: 150 MG

REACTIONS (3)
  - Gastrointestinal haemorrhage [Unknown]
  - Anaemia [Unknown]
  - Haematuria [Unknown]
